FAERS Safety Report 7623808-8 (Version None)
Quarter: 2011Q3

REPORT INFORMATION
  Report Type: 
  Country: None (occurrence: None)
  Receive Date: 20110720
  Receipt Date: 20110708
  Transmission Date: 20111222
  Serious: Yes (Hospitalization)
  Sender: FDA-Public Use
  Company Number: AU-GENENTECH-316585

PATIENT
  Sex: Female

DRUGS (3)
  1. CARDIAC MEDICATION NOS [Concomitant]
     Indication: HYPERTENSION
  2. BLOOD PRESSURE MEDICATION NOS [Concomitant]
     Indication: HYPERTENSION
  3. LUCENTIS [Suspect]
     Indication: MACULAR DEGENERATION
     Dosage: 0.05 ML, UNKNOWN
     Route: 031
     Dates: start: 20100901

REACTIONS (3)
  - DIZZINESS [None]
  - VISION BLURRED [None]
  - DRY EYE [None]
